FAERS Safety Report 7381960-6 (Version None)
Quarter: 2011Q1

REPORT INFORMATION
  Report Type: 
  Country: None (occurrence: None)
  Receive Date: 20110329
  Receipt Date: 20101130
  Transmission Date: 20110831
  Serious: Yes (Hospitalization)
  Sender: FDA-Public Use
  Company Number: JP-BAYER-201012095BYL

PATIENT
  Sex: Male
  Weight: 77 kg

DRUGS (12)
  1. NEXAVAR [Suspect]
     Dosage: 400 MG, QD
     Route: 048
     Dates: start: 20100510, end: 20100924
  2. NEXAVAR [Suspect]
     Dosage: 400 MG, QD
     Route: 048
     Dates: start: 20101025
  3. NEXAVAR [Suspect]
     Dosage: 400 MG, QOD
     Route: 048
     Dates: start: 20101116, end: 20101202
  4. URINORM [Concomitant]
     Dosage: 50 MG, QD
     Route: 048
  5. LASIX [Concomitant]
     Dosage: 20 MG, QD
     Route: 048
  6. NEXAVAR [Suspect]
     Dosage: 400 MG, QOD
     Route: 048
  7. HYPOCA [Concomitant]
     Dosage: 15 MG, QD
     Route: 048
  8. MUCOSTA [Concomitant]
     Dosage: 300 MG, QD
     Route: 048
  9. EPADEL [Concomitant]
     Dosage: 1200 MG, QD
     Route: 048
  10. NEXAVAR [Suspect]
     Indication: RENAL CELL CARCINOMA
     Dosage: 800 MG (DAILY DOSE), ORAL
     Route: 048
     Dates: start: 20100405, end: 20100414
  11. METFORMIN HCL [Concomitant]
     Dosage: 500 MG, QD
     Route: 048
  12. GASTER D [Concomitant]
     Dosage: 20 MG, QD
     Route: 048

REACTIONS (6)
  - DYSARTHRIA [None]
  - HEMIPLEGIA [None]
  - DIARRHOEA [None]
  - FATIGUE [None]
  - CEREBRAL INFARCTION [None]
  - PALMAR-PLANTAR ERYTHRODYSAESTHESIA SYNDROME [None]
